FAERS Safety Report 9516446 (Version 2)
Quarter: 2013Q3

REPORT INFORMATION
  Report Type: Spontaneous
  Country: GB (occurrence: None)
  Receive Date: 20130909
  Receipt Date: 20130924
  Transmission Date: 20140515
  Serious: Yes (Other)
  Sender: FDA-Public Use
  Company Number: AUR-APL-2013-07328

PATIENT
  Age: 18 Year
  Sex: Female
  Weight: 53.9 kg

DRUGS (2)
  1. FLUOXETINE [Suspect]
     Indication: PRODUCT USED FOR UNKNOWN INDICATION
     Route: 048
  2. CIRCADIN (MELATONIN) [Concomitant]

REACTIONS (7)
  - Feeling abnormal [None]
  - Somnolence [None]
  - Decreased appetite [None]
  - Self-injurious ideation [None]
  - Negative thoughts [None]
  - Wrong technique in drug usage process [None]
  - Drug ineffective [None]
